FAERS Safety Report 22018661 (Version 6)
Quarter: 2023Q4

REPORT INFORMATION
  Report Type: Spontaneous
  Country: US (occurrence: US)
  Receive Date: 20230222
  Receipt Date: 20231003
  Transmission Date: 20240109
  Serious: Yes (Hospitalization, Other)
  Sender: FDA-Public Use
  Company Number: US-BEH-2023155520

PATIENT
  Age: 28 Year
  Sex: Female
  Weight: 53.968 kg

DRUGS (4)
  1. HAEGARDA [Suspect]
     Active Substance: HUMAN C1-ESTERASE INHIBITOR
     Indication: Hereditary angioedema
     Dosage: 3000 INTERNATIONAL UNIT, BIW
     Route: 058
     Dates: start: 202108
  2. HAEGARDA [Suspect]
     Active Substance: HUMAN C1-ESTERASE INHIBITOR
     Indication: Prophylaxis
     Dosage: 3300 INTERNATIONAL UNIT/KILOGRAM
     Route: 065
  3. HAEGARDA [Suspect]
     Active Substance: HUMAN C1-ESTERASE INHIBITOR
     Indication: Hereditary angioedema
     Dosage: 3300 INTERNATIONAL UNIT/KILOGRAM, BIW
     Route: 065
  4. HAEGARDA [Suspect]
     Active Substance: HUMAN C1-ESTERASE INHIBITOR
     Indication: Prophylaxis

REACTIONS (9)
  - Hereditary angioedema [Recovered/Resolved]
  - Hereditary angioedema [Recovered/Resolved]
  - Hereditary angioedema [Unknown]
  - Hereditary angioedema [Recovered/Resolved]
  - Hereditary angioedema [Unknown]
  - Hereditary angioedema [Recovered/Resolved]
  - Product use issue [Recovered/Resolved]
  - No adverse event [Recovered/Resolved]
  - Product dose omission issue [Recovered/Resolved]

NARRATIVE: CASE EVENT DATE: 20230128
